FAERS Safety Report 6754332-2 (Version None)
Quarter: 2010Q2

REPORT INFORMATION
  Report Type: 
  Country: None (occurrence: None)
  Receive Date: 20100603
  Receipt Date: 20100528
  Transmission Date: 20101027
  Serious: Yes (Life-Threatening, Hospitalization)
  Sender: FDA-Public Use
  Company Number: SE-BRISTOL-MYERS SQUIBB COMPANY-14349450

PATIENT
  Age: 52 Year
  Sex: Female

DRUGS (5)
  1. ERBITUX [Suspect]
     Indication: HEAD AND NECK CANCER
     Dosage: STRENGTH-2 MG/ML
     Route: 042
     Dates: start: 20080922, end: 20080922
  2. ERBITUX [Suspect]
     Indication: TONSIL CANCER
     Dosage: STRENGTH-2 MG/ML
     Route: 042
     Dates: start: 20080922, end: 20080922
  3. CISPLATIN [Suspect]
     Indication: HEAD AND NECK CANCER
     Dosage: REC INF: 21AUG08
     Route: 042
     Dates: start: 20080820
  4. DOCETAXEL [Suspect]
     Indication: HEAD AND NECK CANCER
     Dosage: REC INF: 21AUG08
     Route: 042
     Dates: start: 20080820
  5. FLUOROURACIL [Suspect]
     Indication: HEAD AND NECK CANCER
     Dosage: REC INF: 21AUG08
     Route: 042
     Dates: start: 20080820

REACTIONS (3)
  - ASTHMA [None]
  - HYPERSENSITIVITY [None]
  - HYPOXIC ENCEPHALOPATHY [None]
